FAERS Safety Report 9806212 (Version 1)
Quarter: 2014Q1

REPORT INFORMATION
  Report Type: Spontaneous
  Country: US (occurrence: US)
  Receive Date: 20140109
  Receipt Date: 20140109
  Transmission Date: 20141002
  Serious: Yes (Death, Other)
  Sender: FDA-Public Use
  Company Number: US-UCBSA-108232

PATIENT
  Age: 34 Year
  Sex: Male

DRUGS (13)
  1. ACETAMINOPHEN/HYDROCODONE [Suspect]
  2. ALPRAZOLAM [Suspect]
  3. PROPRANOLOL [Suspect]
  4. CARVEDILOL [Suspect]
  5. LURASIDONE [Suspect]
  6. RANOLAZINE [Suspect]
  7. MILNACIPRAN [Suspect]
  8. MIRTAZAPINE [Suspect]
  9. VILAZODONE [Suspect]
  10. TOPIRAMATE [Suspect]
  11. CLOPIDOGREL [Suspect]
  12. SIMVASTATIN [Suspect]
  13. HYDROXYZINE [Suspect]

REACTIONS (2)
  - Cardio-respiratory arrest [Fatal]
  - Completed suicide [Fatal]
